FAERS Safety Report 9431411 (Version 1)
Quarter: 2013Q3

REPORT INFORMATION
  Report Type: Spontaneous
  Country: KR (occurrence: KR)
  Receive Date: 20130730
  Receipt Date: 20130730
  Transmission Date: 20140515
  Serious: Yes (Life-Threatening)
  Sender: FDA-Public Use
  Company Number: KR-MYLANLABS-2013S1016160

PATIENT
  Age: 38 Year
  Sex: Female

DRUGS (4)
  1. LIDOCAINE [Suspect]
     Indication: EPIDURAL ANALGESIA
     Dosage: 1% (TEST DOSE)
     Route: 008
  2. EPINEPHRINE [Suspect]
     Indication: EPIDURAL ANALGESIA
     Dosage: 15MICROG (TEST DOSE)
     Route: 008
  3. ROPIVACAINE [Suspect]
     Indication: EPIDURAL ANALGESIA
     Dosage: 0.75%
     Route: 008
  4. FENTANYL [Suspect]
     Indication: EPIDURAL ANALGESIA
     Dosage: 100MICROG
     Route: 008

REACTIONS (5)
  - Respiratory depression [Recovered/Resolved]
  - Bradycardia [Recovered/Resolved]
  - Hypotension [Recovered/Resolved]
  - Exposure during pregnancy [Recovered/Resolved]
  - Drug administered at inappropriate site [Recovered/Resolved]
